FAERS Safety Report 4586063-1 (Version None)
Quarter: 2005Q1

REPORT INFORMATION
  Report Type: 
  Country: None (occurrence: None)
  Receive Date: 20050125
  Receipt Date: 20040908
  Transmission Date: 20050727
  Serious: No
  Sender: FDA-Public Use
  Company Number: USA040977686

PATIENT
  Sex: Female
  Weight: 56.6996 kg

DRUGS (2)
  1. FORTEO [Suspect]
     Indication: OSTEOPOROSIS
     Dates: start: 20040719
  2. ATENOLOL AND CHLORTHALIDONE [Concomitant]

REACTIONS (2)
  - HOT FLUSH [None]
  - MUSCLE SPASMS [None]
